FAERS Safety Report 17210722 (Version 1)
Quarter: 2019Q4

REPORT INFORMATION
  Report Type: Spontaneous
  Country: US (occurrence: US)
  Receive Date: 20191227
  Receipt Date: 20191227
  Transmission Date: 20200122
  Serious: No
  Sender: FDA-Public Use
  Company Number: US-AMPHASTAR PHARMACEUTICALS, INC.-2078253

PATIENT
  Age: 28 Year
  Sex: Female
  Weight: 77.27 kg

DRUGS (1)
  1. MEDROXYPROGESTERONE ACETATE (SINGLE-DOSE SYRINGE) [Suspect]
     Active Substance: MEDROXYPROGESTERONE ACETATE
     Indication: CONTRACEPTION

REACTIONS (7)
  - Skin discolouration [Unknown]
  - Peripheral swelling [Unknown]
  - Paraesthesia [Unknown]
  - Hypokinesia [Unknown]
  - Hypoaesthesia [Unknown]
  - Product administration error [Unknown]
  - Petechiae [Unknown]

NARRATIVE: CASE EVENT DATE: 20190906
